FAERS Safety Report 7812151-X (Version None)
Quarter: 2011Q4

REPORT INFORMATION
  Report Type: 
  Country: None (occurrence: None)
  Receive Date: 20111013
  Receipt Date: 20110715
  Transmission Date: 20120403
  Serious: Yes (Life-Threatening, Hospitalization, Other)
  Sender: FDA-Public Use
  Company Number: PHHY2011DE90156

PATIENT
  Age: 78 Year
  Sex: Male
  Weight: 111 kg

DRUGS (6)
  1. DRUG THERAPY NOS [Concomitant]
  2. PLAVIX [Suspect]
     Dosage: 75 MG, QD
     Route: 048
     Dates: start: 20110202, end: 20110209
  3. FUROSEMIDE [Suspect]
     Indication: OEDEMA
     Route: 042
     Dates: start: 20110202, end: 20110206
  4. HYDROCHLOROTHIAZIDE [Suspect]
     Dosage: 25 MG, QD
     Route: 048
     Dates: start: 20110202, end: 20110208
  5. RAMIPRIL [Suspect]
     Dosage: 10 MG, QD
     Route: 048
     Dates: start: 20101101, end: 20110201
  6. RASILEZ [Suspect]
     Dosage: 300-600 MG DAILY
     Route: 048
     Dates: start: 20110202, end: 20110206

REACTIONS (1)
  - RENAL FAILURE ACUTE [None]
